FAERS Safety Report 7278322-9 (Version None)
Quarter: 2011Q1

REPORT INFORMATION
  Report Type: 
  Country: None (occurrence: None)
  Receive Date: 20110207
  Receipt Date: 20110119
  Transmission Date: 20110831
  Serious: No
  Sender: FDA-Public Use
  Company Number: US-B.I. PHARMACEUTICALS,INC./RIDGEFIELD-2011-BP-02035BP

PATIENT
  Sex: Female

DRUGS (5)
  1. ZOLOFT [Concomitant]
  2. LOTRIL [Concomitant]
     Indication: HYPERTENSION
  3. PRADAXA [Suspect]
     Indication: ATRIAL FIBRILLATION
     Dosage: 300 MG
     Route: 048
     Dates: start: 20101101, end: 20101223
  4. PRADAXA [Suspect]
     Dosage: 300 MG
     Route: 048
     Dates: start: 20101225
  5. AMIODARONE [Concomitant]
     Indication: ATRIAL FIBRILLATION

REACTIONS (9)
  - SKIN HAEMORRHAGE [None]
  - CONTUSION [None]
  - DIZZINESS [None]
  - FALL [None]
  - FEAR [None]
  - DYSKINESIA [None]
  - LACERATION [None]
  - HEADACHE [None]
  - GAIT DISTURBANCE [None]
